FAERS Safety Report 8809803 (Version 3)
Quarter: 2013Q1

REPORT INFORMATION
  Report Type: Report from Study
  Country: BR (occurrence: BR)
  Receive Date: 20120926
  Receipt Date: 20130124
  Transmission Date: 20140127
  Serious: Yes (Hospitalization, Other)
  Sender: FDA-Public Use
  Company Number: BR-ROCHE-1129118

PATIENT
  Age: 45 Year
  Sex: Female
  Weight: 80 kg

DRUGS (10)
  1. RITUXIMAB [Suspect]
     Indication: SYSTEMIC LUPUS ERYTHEMATOSUS
     Route: 065
     Dates: start: 20110805, end: 20110818
  2. RITUXIMAB [Suspect]
     Dosage: SECOND CYCLE
     Route: 065
     Dates: start: 20120220, end: 20120306
  3. MAREVAN [Concomitant]
  4. PHENYTOIN [Concomitant]
     Route: 065
  5. CYMBALTA [Concomitant]
     Route: 065
  6. LYRICA [Concomitant]
     Route: 065
  7. CORTISONE [Concomitant]
     Indication: PREMEDICATION
     Route: 065
  8. AMYTRIL [Concomitant]
     Route: 065
  9. ALPRAZOLAM [Concomitant]
     Route: 065
  10. ATORVASTATIN CALCIUM [Concomitant]

REACTIONS (6)
  - Urinary tract infection [Not Recovered/Not Resolved]
  - Malaise [Not Recovered/Not Resolved]
  - Coagulopathy [Recovered/Resolved]
  - Blood urine present [Recovering/Resolving]
  - Joint swelling [Recovering/Resolving]
  - Musculoskeletal disorder [Unknown]
